FAERS Safety Report 20722177 (Version 2)
Quarter: 2022Q2

REPORT INFORMATION
  Report Type: Spontaneous
  Country: US (occurrence: US)
  Receive Date: 20220418
  Receipt Date: 20220621
  Transmission Date: 20220721
  Serious: Yes (Death, Hospitalization)
  Sender: FDA-Public Use
  Company Number: US-NOVARTISPH-NVSC2022US086926

PATIENT
  Age: 23 Year
  Sex: Male

DRUGS (1)
  1. ADAKVEO [Suspect]
     Active Substance: CRIZANLIZUMAB-TMCA
     Indication: Sickle cell anaemia with crisis
     Dosage: 5 MG/KG, QMO
     Route: 042
     Dates: start: 20210401, end: 20210401

REACTIONS (3)
  - Influenza [Fatal]
  - Pyrexia [Fatal]
  - Ill-defined disorder [Fatal]

NARRATIVE: CASE EVENT DATE: 20220401
